FAERS Safety Report 6717814-5 (Version None)
Quarter: 2010Q2

REPORT INFORMATION
  Report Type: 
  Country: None (occurrence: None)
  Receive Date: 20100510
  Receipt Date: 20100407
  Transmission Date: 20101027
  Serious: No
  Sender: FDA-Public Use
  Company Number: US-BAYER-201018931NA

PATIENT
  Age: 63 Year
  Sex: Male

DRUGS (5)
  1. ULTRAVIST 300 [Suspect]
     Indication: COMPUTERISED TOMOGRAM ABDOMEN
     Dosage: TOTAL DAILY DOSE: 150 ML  UNIT DOSE: 150 ML
     Route: 042
     Dates: start: 20100405, end: 20100405
  2. PROSTRATE MEDICATION [Concomitant]
  3. SIMVASTATIN [Concomitant]
  4. FINASTERIDE [Concomitant]
  5. METOPROLOL [Concomitant]

REACTIONS (4)
  - DIZZINESS [None]
  - PRURITUS [None]
  - SWELLING FACE [None]
  - URTICARIA [None]
